FAERS Safety Report 20492645 (Version 1)
Quarter: 2022Q1

REPORT INFORMATION
  Report Type: Report from Study
  Country: FI (occurrence: FI)
  Receive Date: 20220219
  Receipt Date: 20220219
  Transmission Date: 20220423
  Serious: Yes (Other)
  Sender: FDA-Public Use
  Company Number: FI-JNJFOC-20220223634

PATIENT

DRUGS (1)
  1. RISPERDAL [Suspect]
     Active Substance: RISPERIDONE
     Indication: Product used for unknown indication
     Route: 065

REACTIONS (8)
  - Respiratory tract malformation [Unknown]
  - Gastrointestinal malformation [Unknown]
  - Congenital genitourinary abnormality [Unknown]
  - Congenital musculoskeletal anomaly [Unknown]
  - Heart disease congenital [Unknown]
  - Congenital central nervous system anomaly [Unknown]
  - Cleft lip and palate [Unknown]
  - Foetal exposure during pregnancy [Recovered/Resolved]
